FAERS Safety Report 14325578 (Version 2)
Quarter: 2018Q1

REPORT INFORMATION
  Report Type: Report from Study
  Country: JP (occurrence: JP)
  Receive Date: 20171226
  Receipt Date: 20180214
  Transmission Date: 20180509
  Serious: Yes (Hospitalization)
  Sender: FDA-Public Use
  Company Number: PHJP2017JP036813

PATIENT
  Age: 83 Year
  Sex: Male
  Weight: 60.8 kg

DRUGS (31)
  1. BLINDED ENALAPRIL [Suspect]
     Active Substance: ENALAPRIL
     Dosage: CODE NOT BROKEN
     Route: 048
     Dates: start: 20170905, end: 20170914
  2. CRESTOR [Concomitant]
     Active Substance: ROSUVASTATIN CALCIUM
     Indication: HYPERLIPIDAEMIA
     Dosage: 2.5 MG, UNK
     Route: 048
     Dates: start: 20080105
  3. WARFARIN [Concomitant]
     Active Substance: WARFARIN
     Dosage: 0.75 MG, QD
     Route: 048
     Dates: start: 20171120
  4. TALION [Concomitant]
     Active Substance: BEPOTASTINE
     Indication: TOXIC SKIN ERUPTION
     Dosage: 10 MG, BID
     Route: 048
     Dates: start: 20171027
  5. DERMOVATE [Concomitant]
     Active Substance: CLOBETASOL
     Indication: TOXIC SKIN ERUPTION
     Dosage: Q.S., BID
     Route: 061
     Dates: start: 20171027
  6. HANP [Concomitant]
     Active Substance: CARPERITIDE
     Indication: CARDIAC FAILURE
     Dosage: 1.0 ML, QH
     Route: 041
     Dates: start: 20171101, end: 20171107
  7. BLINDED LCZ696 [Suspect]
     Active Substance: SACUBITRIL\VALSARTAN
     Indication: CARDIAC FAILURE CHRONIC
     Dosage: CODE NOT BROKEN
     Route: 048
     Dates: start: 20160803, end: 20170828
  8. BLINDED NO TREATMENT RECEIVED [Suspect]
     Active Substance: INVESTIGATIONAL PRODUCT
     Dosage: CODE NOT BROKEN
     Route: 048
     Dates: start: 20170905, end: 20170914
  9. NEXIUM CONTROL [Concomitant]
     Active Substance: ESOMEPRAZOLE MAGNESIUM
     Indication: PROPHYLAXIS
     Dosage: 20 MG, QD
     Route: 048
     Dates: start: 20131023
  10. AMIODARONE [Concomitant]
     Active Substance: AMIODARONE
     Indication: PROPHYLAXIS
     Dosage: 50 MG, BID
     Route: 048
     Dates: start: 20130702
  11. BLINDED ENALAPRIL [Suspect]
     Active Substance: ENALAPRIL
     Indication: CARDIAC FAILURE CHRONIC
     Dosage: CODE NOT BROKEN
     Route: 048
     Dates: start: 20160803, end: 20170828
  12. FUROSEMIDE. [Concomitant]
     Active Substance: FUROSEMIDE
     Dosage: 40 MG, QD
     Route: 048
     Dates: start: 20171114
  13. COVERSIL [Concomitant]
     Dosage: 1 MG, QD
     Route: 048
     Dates: start: 20151007
  14. MAINTATE [Concomitant]
     Active Substance: BISOPROLOL FUMARATE
     Indication: CARDIAC FAILURE
     Dosage: 1.25 MG, QD
     Route: 048
     Dates: start: 20170906
  15. DIART [Concomitant]
     Active Substance: AZOSEMIDE
     Indication: CARDIAC FAILURE
     Dosage: 30 MG, QD
     Route: 048
     Dates: start: 20130703
  16. LASIX [Concomitant]
     Active Substance: FUROSEMIDE
     Indication: CARDIAC FAILURE
     Dosage: UNK
     Route: 042
     Dates: start: 20170825
  17. LASIX [Concomitant]
     Active Substance: FUROSEMIDE
     Dosage: 20 MG, QD
     Route: 042
     Dates: start: 20171122, end: 20171224
  18. BLINDED LCZ696 [Suspect]
     Active Substance: SACUBITRIL\VALSARTAN
     Dosage: CODE NOT BROKEN
     Route: 048
     Dates: start: 20170905, end: 20170914
  19. BROTIZOLAM [Concomitant]
     Active Substance: BROTIZOLAM
     Indication: INSOMNIA
     Dosage: 0.25 MG, QD
     Route: 048
     Dates: start: 20140225
  20. GENTACIN [Suspect]
     Active Substance: GENTAMICIN SULFATE
     Indication: STAPHYLOCOCCAL INFECTION
     Dosage: 40 MG, BID
     Route: 041
     Dates: start: 20171205, end: 20171214
  21. HANP [Concomitant]
     Active Substance: CARPERITIDE
     Dosage: 0.5 ML, QH
     Route: 041
     Dates: start: 20171229, end: 20180110
  22. HEAVY MAGNESIUM OXIDE [Concomitant]
     Active Substance: MAGNESIUM OXIDE
     Indication: CONSTIPATION
     Dosage: 0.4 G, TID
     Route: 048
     Dates: start: 20170818
  23. WARFARIN [Concomitant]
     Active Substance: WARFARIN
     Indication: THROMBOSIS PROPHYLAXIS
     Dosage: 1.5 MG, QD
     Route: 048
     Dates: start: 20111228
  24. ZINC OXIDE. [Concomitant]
     Active Substance: ZINC OXIDE
     Indication: TOXIC SKIN ERUPTION
     Dosage: UNK
     Route: 061
     Dates: start: 20171027
  25. HANP [Concomitant]
     Active Substance: CARPERITIDE
     Dosage: 1.0 ML, QH
     Route: 041
     Dates: start: 20171120, end: 20171212
  26. VANCOMYCIN HYDROCHLORIDE FOR INTRAVENOUS INFUSION [Suspect]
     Active Substance: VANCOMYCIN HYDROCHLORIDE
     Indication: STAPHYLOCOCCAL INFECTION
     Dosage: 0.5 G, QD
     Route: 041
     Dates: start: 20171205, end: 20171213
  27. BLINDED NO TREATMENT RECEIVED [Suspect]
     Active Substance: INVESTIGATIONAL PRODUCT
     Indication: CARDIAC FAILURE CHRONIC
     Dosage: CODE NOT BROKEN
     Route: 048
     Dates: start: 20160803, end: 20170828
  28. LCZ696 [Suspect]
     Active Substance: SACUBITRIL\VALSARTAN
     Indication: CARDIAC FAILURE CHRONIC
     Dosage: UNK
     Route: 048
     Dates: start: 20160720, end: 20160801
  29. LAC-B [Concomitant]
     Active Substance: BIFIDOBACTERIUM SPP.
     Indication: CONSTIPATION
     Dosage: TID
     Route: 048
     Dates: start: 20170818
  30. FUROSEMIDE. [Concomitant]
     Active Substance: FUROSEMIDE
     Indication: CARDIAC FAILURE
     Dosage: 10 MG, QD
     Route: 048
     Dates: start: 20140618
  31. COVERSIL [Concomitant]
     Indication: CARDIAC FAILURE
     Dosage: 2 MG, QD
     Route: 048
     Dates: start: 20151007

REACTIONS (2)
  - Nephrosclerosis [Recovered/Resolved]
  - Concomitant disease aggravated [Recovered/Resolved]

NARRATIVE: CASE EVENT DATE: 20171214
